FAERS Safety Report 7865941-1 (Version None)
Quarter: 2011Q4

REPORT INFORMATION
  Report Type: 
  Country: None (occurrence: None)
  Receive Date: 20111028
  Receipt Date: 20110323
  Transmission Date: 20120403
  Serious: Yes (Other)
  Sender: FDA-Public Use
  Company Number: US-GLAXOSMITHKLINE-A0919562A

PATIENT
  Age: 68 Year
  Sex: Male

DRUGS (9)
  1. NEXIUM [Concomitant]
  2. AVODART [Concomitant]
  3. NASONEX [Concomitant]
  4. WELLBUTRIN [Concomitant]
     Route: 048
  5. ADVAIR DISKUS 100/50 [Suspect]
     Indication: CHRONIC OBSTRUCTIVE PULMONARY DISEASE
     Dosage: 1PUFF TWICE PER DAY
     Route: 055
     Dates: start: 20060101
  6. RANITIDINE [Concomitant]
  7. SPIRIVA [Concomitant]
  8. ACTONEL [Concomitant]
  9. UROXATRAL [Concomitant]

REACTIONS (6)
  - CANDIDIASIS [None]
  - DYSPHONIA [None]
  - PNEUMONIA [None]
  - PHARYNGEAL ERYTHEMA [None]
  - BRONCHITIS [None]
  - PHARYNGEAL OEDEMA [None]
